FAERS Safety Report 9445711 (Version 1)
Quarter: 2013Q3

REPORT INFORMATION
  Report Type: Spontaneous
  Country: GB (occurrence: GB)
  Receive Date: 20130807
  Receipt Date: 20130807
  Transmission Date: 20140515
  Serious: Yes (Life-Threatening)
  Sender: FDA-Public Use
  Company Number: GB-PFIZER INC-2013224792

PATIENT
  Age: 83 Year
  Sex: Female

DRUGS (3)
  1. CELECOXIB [Suspect]
     Indication: ARTHRITIS
     Dosage: 200 MG, 1X/DAY
     Route: 048
     Dates: start: 20130715
  2. CELECOXIB [Suspect]
     Indication: RHEUMATIC DISORDER
  3. OMEPRAZOLE [Concomitant]
     Dosage: UNK

REACTIONS (2)
  - Subarachnoid haemorrhage [Unknown]
  - Haemorrhage intracranial [Unknown]
